FAERS Safety Report 9174461 (Version 1)
Quarter: 2013Q1

REPORT INFORMATION
  Report Type: Spontaneous
  Country: AR (occurrence: AR)
  Receive Date: 20130320
  Receipt Date: 20130320
  Transmission Date: 20140127
  Serious: Yes (Death, Hospitalization)
  Sender: FDA-Public Use
  Company Number: PHHY2013AR026951

PATIENT
  Age: 82 Year
  Sex: Male

DRUGS (1)
  1. EXELON [Suspect]
     Indication: DEMENTIA WITH LEWY BODIES
     Dosage: 4.5 MG AND 1.5 MG, DAILY
     Route: 048
     Dates: start: 201211

REACTIONS (3)
  - Cardiac failure [Fatal]
  - Respiratory disorder [Fatal]
  - Dyspnoea [Fatal]
